FAERS Safety Report 14441488 (Version 2)
Quarter: 2018Q3

REPORT INFORMATION
  Report Type: Spontaneous
  Country: US (occurrence: US)
  Receive Date: 20180125
  Receipt Date: 20180703
  Transmission Date: 20181010
  Serious: Yes (Hospitalization, Other)
  Sender: FDA-Public Use
  Company Number: US-DSJP-DSU-2017-140902

PATIENT

DRUGS (1)
  1. BENICAR [Suspect]
     Active Substance: OLMESARTAN MEDOXOMIL
     Indication: HYPERTENSION
     Dosage: 5 MG, UNK
     Dates: start: 20110317, end: 20170823

REACTIONS (6)
  - Sprue-like enteropathy [Unknown]
  - Syncope [Unknown]
  - Hypotension [Unknown]
  - Sinusitis [Recovered/Resolved]
  - Cholecystitis chronic [Recovered/Resolved]
  - Senile osteoporosis [Recovered/Resolved]

NARRATIVE: CASE EVENT DATE: 20130304
